FAERS Safety Report 12789038 (Version 2)
Quarter: 2016Q3

REPORT INFORMATION
  Report Type: Spontaneous
  Country: FR (occurrence: FR)
  Receive Date: 20160928
  Receipt Date: 20160929
  Transmission Date: 20161109
  Serious: Yes (Other)
  Sender: FDA-Public Use
  Company Number: FR-TEVA-690945ROM

PATIENT
  Age: 16 Year
  Sex: Male

DRUGS (1)
  1. PROPRANOLOL [Suspect]
     Active Substance: PROPRANOLOL\PROPRANOLOL HYDROCHLORIDE
     Indication: PALPITATIONS
     Dosage: HALF-TABLET PER DAY, IN THE MORNING

REACTIONS (6)
  - Asthma [Unknown]
  - Drug ineffective [Unknown]
  - Palpitations [Not Recovered/Not Resolved]
  - Wheezing [Unknown]
  - Product substitution issue [Unknown]
  - Dyspnoea [Not Recovered/Not Resolved]

NARRATIVE: CASE EVENT DATE: 2016
